FAERS Safety Report 5448092-5 (Version None)
Quarter: 2007Q3

REPORT INFORMATION
  Report Type: 
  Country: None (occurrence: None)
  Receive Date: 20070801
  Receipt Date: 20070430
  Transmission Date: 20080115
  Serious: No
  Sender: FDA-Public Use
  Company Number: 2007-US-000220

PATIENT
  Age: 12 Year
  Sex: Male
  Weight: 31.7 kg

DRUGS (4)
  1. INCRELEX [Suspect]
     Indication: BODY HEIGHT BELOW NORMAL
     Dosage: 3.6 MG, BID, SUBCUTANEOUS; 2.4 MG, BID, SUBCUTANEOUS; 3.6 MG, BID, SUBCUTANEOUS
     Route: 058
     Dates: start: 20070322, end: 20070421
  2. INCRELEX [Suspect]
     Indication: BODY HEIGHT BELOW NORMAL
     Dosage: 3.6 MG, BID, SUBCUTANEOUS; 2.4 MG, BID, SUBCUTANEOUS; 3.6 MG, BID, SUBCUTANEOUS
     Route: 058
     Dates: start: 20070422, end: 20070426
  3. INCRELEX [Suspect]
     Indication: BODY HEIGHT BELOW NORMAL
     Dosage: 3.6 MG, BID, SUBCUTANEOUS; 2.4 MG, BID, SUBCUTANEOUS; 3.6 MG, BID, SUBCUTANEOUS
     Route: 058
     Dates: start: 20070503
  4. INCRELEX [Suspect]

REACTIONS (3)
  - INJECTION SITE ERYTHEMA [None]
  - INJECTION SITE PRURITUS [None]
  - INJECTION SITE URTICARIA [None]
